FAERS Safety Report 5957190-9 (Version None)
Quarter: 2008Q4

REPORT INFORMATION
  Report Type: 
  Country: None (occurrence: None)
  Receive Date: 20081106
  Receipt Date: 20071214
  Transmission Date: 20090506
  Serious: Yes (Other)
  Sender: FDA-Public Use
  Company Number: US200712003091

PATIENT
  Age: 12 Year
  Sex: Female

DRUGS (4)
  1. PROZAC [Suspect]
     Indication: DEPRESSION
     Dates: end: 20050101
  2. LITHIUM CARBONATE [Concomitant]
  3. TRILEPTAL [Concomitant]
  4. ALBUTEROL [Concomitant]

REACTIONS (1)
  - SUICIDE ATTEMPT [None]
